FAERS Safety Report 18121473 (Version 2)
Quarter: 2020Q3

REPORT INFORMATION
  Report Type: Report from Study
  Country: AU (occurrence: AU)
  Receive Date: 20200807
  Receipt Date: 20200909
  Transmission Date: 20201103
  Serious: Yes (Hospitalization, Other)
  Sender: FDA-Public Use
  Company Number: AU-AMGEN-AUSSL2019198701

PATIENT
  Age: 86 Year
  Sex: Female

DRUGS (3)
  1. ARANESP [Suspect]
     Active Substance: DARBEPOETIN ALFA
     Indication: NEPHROGENIC ANAEMIA
     Dosage: UNK UNK, Q2WK
     Route: 065
  2. ARANESP [Suspect]
     Active Substance: DARBEPOETIN ALFA
     Indication: CHRONIC KIDNEY DISEASE
     Dosage: UNK UNK, QMO
     Route: 065
  3. ARANESP [Suspect]
     Active Substance: DARBEPOETIN ALFA
     Dosage: 30 UNK, QWK
     Route: 065

REACTIONS (7)
  - Anaemia [Unknown]
  - Feeling abnormal [Unknown]
  - Haemoglobin increased [Unknown]
  - Agitation [Unknown]
  - Unevaluable event [Unknown]
  - Amnesia [Unknown]
  - Anxiety [Unknown]
